FAERS Safety Report 8069278-X (Version None)
Quarter: 2012Q1

REPORT INFORMATION
  Report Type: 
  Country: None (occurrence: None)
  Receive Date: 20120118
  Receipt Date: 20120109
  Transmission Date: 20120608
  Serious: Yes (Death)
  Sender: FDA-Public Use
  Company Number: JPI-P-014822

PATIENT
  Age: 70 Year
  Sex: Female

DRUGS (4)
  1. XYREM [Suspect]
     Indication: NARCOLEPSY
     Dosage: 4.5 GM (2.25 GM, 2 IN 1 D), ORAL 6 GM (3 GM, 2 IN 1 D), ORAL 7.5 GM (3.75 GM, 2 IN 1 D) ORAL 9 GM (4
     Route: 048
     Dates: start: 20060119, end: 20060501
  2. XYREM [Suspect]
     Indication: NARCOLEPSY
     Dosage: 4.5 GM (2.25 GM, 2 IN 1 D), ORAL 6 GM (3 GM, 2 IN 1 D), ORAL 7.5 GM (3.75 GM, 2 IN 1 D) ORAL 9 GM (4
     Route: 048
     Dates: start: 20060519, end: 20060901
  3. XYREM [Suspect]
     Indication: NARCOLEPSY
     Dosage: 4.5 GM (2.25 GM, 2 IN 1 D), ORAL 6 GM (3 GM, 2 IN 1 D), ORAL 7.5 GM (3.75 GM, 2 IN 1 D) ORAL 9 GM (4
     Route: 048
     Dates: start: 20060915, end: 20061101
  4. XYREM [Suspect]
     Indication: NARCOLEPSY
     Dosage: 4.5 GM (2.25 GM, 2 IN 1 D), ORAL 6 GM (3 GM, 2 IN 1 D), ORAL 7.5 GM (3.75 GM, 2 IN 1 D) ORAL 9 GM (4
     Route: 048
     Dates: start: 20061122, end: 20071006

REACTIONS (1)
  - CERVIX CARCINOMA [None]
